FAERS Safety Report 6921393-7 (Version None)
Quarter: 2010Q3

REPORT INFORMATION
  Report Type: 
  Country: None (occurrence: None)
  Receive Date: 20100812
  Receipt Date: 20100729
  Transmission Date: 20110219
  Serious: Yes (Other)
  Sender: FDA-Public Use
  Company Number: PHHY2010AU06713

PATIENT
  Sex: Male

DRUGS (7)
  1. EVEROLIMUS [Suspect]
     Indication: PROPHYLAXIS AGAINST TRANSPLANT REJECTION
     Dosage: 1.5 MG, BID
     Route: 048
  2. EVEROLIMUS [Interacting]
     Dosage: 0.75 MG, QD
     Route: 048
  3. EVEROLIMUS [Interacting]
     Dosage: 0.75 MG, BID
     Route: 048
  4. PRISTINAMYCIN [Interacting]
     Dosage: 1 G, TID
     Route: 048
     Dates: start: 20020820, end: 20080911
  5. MYCOPHENOLATE MOFETIL [Concomitant]
     Dosage: 1000 MG, BID
     Route: 048
     Dates: start: 20080601
  6. WARFARIN [Concomitant]
     Dosage: UNK
     Dates: start: 20080801
  7. PREDNISOLONE [Concomitant]
     Dosage: 30 MG, QD

REACTIONS (7)
  - BLOOD CREATININE INCREASED [None]
  - CONFUSIONAL STATE [None]
  - CRANIOTOMY [None]
  - DRUG INTERACTION [None]
  - IMMUNOSUPPRESSANT DRUG LEVEL INCREASED [None]
  - STAPHYLOCOCCAL INFECTION [None]
  - SUBDURAL HAEMORRHAGE [None]
